FAERS Safety Report 16024349 (Version 1)
Quarter: 2019Q1

REPORT INFORMATION
  Report Type: Report from Study
  Country: RU (occurrence: RU)
  Receive Date: 20190301
  Receipt Date: 20190301
  Transmission Date: 20190418
  Serious: Yes (Hospitalization, Other)
  Sender: FDA-Public Use
  Company Number: RU-ASTRAZENECA-2018SF60601

PATIENT
  Age: 62 Year
  Sex: Female
  Weight: 118 kg

DRUGS (6)
  1. FORXIGA [Suspect]
     Active Substance: DAPAGLIFLOZIN
     Indication: TYPE 2 DIABETES MELLITUS
     Route: 048
     Dates: start: 20181122
  2. CONCOR [Concomitant]
     Active Substance: BISOPROLOL FUMARATE
  3. RENEVAL [Concomitant]
  4. HYPOTHIAZID [Concomitant]
     Active Substance: HYDROCHLOROTHIAZIDE
  5. EUTHYROX [Concomitant]
     Active Substance: LEVOTHYROXINE SODIUM
  6. APROVASC [Concomitant]
     Active Substance: AMLODIPINE BESYLATE\IRBESARTAN

REACTIONS (10)
  - Mitral valve disease [Not Recovered/Not Resolved]
  - Asphyxia [Unknown]
  - Drug ineffective [Not Recovered/Not Resolved]
  - Pulmonary oedema [Unknown]
  - Heart rate increased [Recovered/Resolved]
  - Blood glucose increased [Recovered/Resolved with Sequelae]
  - Blood pressure increased [Recovered/Resolved]
  - Dysuria [Recovered/Resolved]
  - Dyspnoea [Recovered/Resolved]
  - Pruritus genital [Recovered/Resolved]
